FAERS Safety Report 5236071-2 (Version None)
Quarter: 2007Q1

REPORT INFORMATION
  Report Type: 
  Country: None (occurrence: None)
  Receive Date: 20061208
  Receipt Date: 20060601
  Transmission Date: 20070707
  Serious: Yes (Other)
  Sender: FDA-Public Use
  Company Number: 2006UW10583

PATIENT
  Age: 48 Year
  Sex: Female
  Weight: 90.718 kg

DRUGS (5)
  1. CRESTOR [Suspect]
     Indication: BLOOD CHOLESTEROL INCREASED
     Dosage: 10 MG PO
     Route: 048
     Dates: start: 20041101, end: 20050501
  2. SYNTHROID [Concomitant]
  3. HYDROCHLOROTHIAZIDE [Concomitant]
  4. PLENDIL [Concomitant]
  5. CONCERTA [Concomitant]

REACTIONS (2)
  - TOOTH ABSCESS [None]
  - UPPER RESPIRATORY TRACT INFECTION [None]
